FAERS Safety Report 19817306 (Version 1)
Quarter: 2021Q3

REPORT INFORMATION
  Report Type: Spontaneous
  Country: GB (occurrence: GB)
  Receive Date: 20210910
  Receipt Date: 20210910
  Transmission Date: 20211014
  Serious: Yes (Other)
  Sender: FDA-Public Use
  Company Number: GB-TEVA-2021-GB-1950766

PATIENT
  Age: 48 Year
  Sex: Female
  Weight: 96 kg

DRUGS (22)
  1. ORAMORPH [Concomitant]
     Active Substance: MORPHINE SULFATE
     Dosage: TAKE 2.5?5MLS EVERY 4?6 HOURS
     Dates: start: 20180405
  2. ZAPAIN [Concomitant]
     Active Substance: ACETAMINOPHEN\CODEINE PHOSPHATE
     Dosage: TAKE ONE OR TWO TABLETS, UP TO FOUR TIMES A DAY...
     Route: 048
     Dates: start: 20191206
  3. CITALOPRAM [Concomitant]
     Active Substance: CITALOPRAM HYDROBROMIDE
     Indication: AFFECTIVE DISORDER
     Dosage: TAKE ONE OR TWO TABLETS DAILY, TO IMPROVE MOOD ...
     Route: 048
     Dates: start: 20191206
  4. CLENIL MODULITE [Concomitant]
     Active Substance: BECLOMETHASONE DIPROPIONATE
     Dosage: 2 DOSAGE FORMS DAILY; UNIT DOSE : 1 DOSAGE FORMS
     Route: 055
     Dates: start: 20191206
  5. COLCHICINE. [Concomitant]
     Active Substance: COLCHICINE
     Dosage: ONE (OR TWO IN CASE OF FLARE)  TO BE TAKEN DAIL...
     Dates: start: 20160915
  6. BUSCOPAN [Concomitant]
     Active Substance: BUTYLSCOPOLAMINE BROMIDE
     Dosage: 8 DOSAGE FORMS DAILY; UNIT DOSE : 2 DOSAGE FORMS
     Dates: start: 20190731
  7. EMPAGLIFLOZIN [Concomitant]
     Active Substance: EMPAGLIFLOZIN
     Indication: DIABETES MELLITUS
     Dosage: 1 DOSAGE FORMS DAILY;
     Route: 048
     Dates: start: 20210323
  8. HUMULIN L [Concomitant]
     Active Substance: INSULIN HUMAN
     Route: 058
     Dates: start: 20210323
  9. NAPROXEN. [Concomitant]
     Active Substance: NAPROXEN
     Dosage: 2 DOSAGE FORMS DAILY; WITH/AFTER FOOD ? WEAN TO ...UNIT DOSE : 1 DOSAGE FORMS
     Dates: start: 20191206
  10. BISOPROLOL [Concomitant]
     Active Substance: BISOPROLOL
     Dosage: 1 DOSAGE FORMS DAILY;
     Route: 048
     Dates: start: 20210323
  11. LEVOTHYROXINE. [Concomitant]
     Active Substance: LEVOTHYROXINE
     Dosage: 1 DOSAGE FORMS DAILY; EVERY MORNING, TO TREAT UNDERAC...
     Route: 048
     Dates: start: 20210323
  12. EPADERM [Concomitant]
     Active Substance: MINERAL OIL\PETROLATUM\WAX, EMULSIFYING
     Dosage: USE AS DIRECTED
     Dates: start: 20201118
  13. FLUTICASONE FUROATE [Concomitant]
     Active Substance: FLUTICASONE FUROATE
     Dosage: 1 DOSAGE FORMS DAILY;
     Dates: start: 20150130
  14. OMEPRAZOLE. [Concomitant]
     Active Substance: OMEPRAZOLE
     Dosage: TAKE ONE OR TWO CAPSULES DAILY
     Route: 048
     Dates: start: 20210414
  15. FLUOXETINE [Suspect]
     Active Substance: FLUOXETINE HYDROCHLORIDE
     Dosage: 20 MILLIGRAM DAILY; IN THE MORNING TO RAISE...
     Route: 048
     Dates: start: 20210614, end: 20210626
  16. DIAZEPAM. [Concomitant]
     Active Substance: DIAZEPAM
     Indication: ANXIETY
     Dosage: TAKE ONE OR TWO AS NEEDED
     Dates: start: 20210626
  17. MOVICOL [Concomitant]
     Active Substance: POLYETHYLENE GLYCOL 3350\POTASSIUM CHLORIDE\SODIUM BICARBONATE\SODIUM CHLORIDE
     Dosage: USE AS DIRECTED
     Dates: start: 20170412
  18. MEZOLAR MATRIX [Concomitant]
     Active Substance: FENTANYL
     Dosage: APPLY PATCH, UNIT DOSE : 1 DOSAGE FORMS
     Dates: start: 20191206
  19. LANSOPRAZOLE. [Concomitant]
     Active Substance: LANSOPRAZOLE
     Dosage: ONE OR TWO CAPSULES
     Route: 048
     Dates: start: 20210812
  20. OZEMPIC [Concomitant]
     Active Substance: SEMAGLUTIDE
     Dosage: UNIT DOSE : 1 DOSAGE FORMS
     Dates: start: 20210323
  21. SPIRONOLACTONE. [Concomitant]
     Active Substance: SPIRONOLACTONE
     Indication: BLOOD PRESSURE MEASUREMENT
     Dosage: 1 DOSAGE FORMS DAILY;
     Route: 048
     Dates: start: 20210524
  22. VENTOLIN [Concomitant]
     Active Substance: ALBUTEROL SULFATE
     Dosage: UNIT DOSE : 2 DOSAGE FORMS
     Route: 055
     Dates: start: 20191206

REACTIONS (1)
  - Pharyngeal swelling [Recovered/Resolved]

NARRATIVE: CASE EVENT DATE: 20210619
